FAERS Safety Report 9170714 (Version 2)
Quarter: 2013Q2

REPORT INFORMATION
  Report Type: Spontaneous
  Country: BR (occurrence: BR)
  Receive Date: 20130319
  Receipt Date: 20130411
  Transmission Date: 20140414
  Serious: Yes (Death, Hospitalization)
  Sender: FDA-Public Use
  Company Number: BR-SANOFI-AVENTIS-2013SA027818

PATIENT
  Age: 58 Year
  Sex: Male
  Weight: 100 kg

DRUGS (2)
  1. LASIX [Suspect]
     Indication: INFLAMMATION
     Route: 048
     Dates: start: 20130222, end: 20130222
  2. INSULIN [Concomitant]
     Indication: DIABETES MELLITUS
     Dosage: 24 HOURS ACTION
     Dates: start: 2007

REACTIONS (5)
  - Cardiac arrest [Fatal]
  - Off label use [Unknown]
  - Dyspnoea [Unknown]
  - Renal pain [Unknown]
  - Insomnia [Unknown]
